FAERS Safety Report 7288779-5 (Version None)
Quarter: 2011Q1

REPORT INFORMATION
  Report Type: 
  Country: None (occurrence: None)
  Receive Date: 20110211
  Receipt Date: 20110131
  Transmission Date: 20110831
  Serious: Yes (Other)
  Sender: FDA-Public Use
  Company Number: PT-JNJFOC-20110104311

PATIENT
  Age: 52 Year
  Sex: Female

DRUGS (1)
  1. GOLIMUMAB [Suspect]
     Indication: PSORIASIS
     Route: 058

REACTIONS (5)
  - LYMPHOMA [None]
  - THROMBOCYTOSIS [None]
  - DISSEMINATED TUBERCULOSIS [None]
  - EAR INFECTION [None]
  - ARTHROPATHY [None]
